FAERS Safety Report 12848764 (Version 1)
Quarter: 2016Q4

REPORT INFORMATION
  Report Type: Spontaneous
  Country: US (occurrence: US)
  Receive Date: 20161014
  Receipt Date: 20161014
  Transmission Date: 20170207
  Serious: No
  Sender: FDA-Public Use
  Company Number: US-JNJFOC-20160807633

PATIENT
  Age: 89 Year
  Sex: Female

DRUGS (2)
  1. TYLENOL 8 HR ARTHRITIS PAIN [Suspect]
     Active Substance: ACETAMINOPHEN
     Route: 048
  2. TYLENOL 8 HR ARTHRITIS PAIN [Suspect]
     Active Substance: ACETAMINOPHEN
     Indication: HERPES ZOSTER
     Dosage: TWO CAPLETS,AS NEEDED OR EVERY 8 HOURS.
     Route: 048

REACTIONS (4)
  - Off label use [Recovering/Resolving]
  - Diarrhoea [Recovering/Resolving]
  - Product use issue [Recovering/Resolving]
  - Therapeutic response unexpected [Recovering/Resolving]
